FAERS Safety Report 14824582 (Version 3)
Quarter: 2018Q2

REPORT INFORMATION
  Report Type: Spontaneous
  Country: US (occurrence: US)
  Receive Date: 20180429
  Receipt Date: 20180525
  Transmission Date: 20180711
  Serious: No
  Sender: FDA-Public Use
  Company Number: US-009507513-1804USA009353

PATIENT
  Age: 34 Year
  Sex: Female
  Weight: 75 kg

DRUGS (3)
  1. NEXPLANON [Suspect]
     Active Substance: ETONOGESTREL
     Indication: CONTRACEPTION
     Dosage: 1 ROD EVERY THREE YEARS
     Route: 059
     Dates: start: 20180418, end: 20180421
  2. CEPHALEXIN. [Concomitant]
     Active Substance: CEPHALEXIN
     Dosage: 500 MG, TID
     Route: 048
  3. FLUTICASONE PROPIONATE. [Concomitant]
     Active Substance: FLUTICASONE PROPIONATE
     Indication: HYPERSENSITIVITY
     Dosage: 2 SPRAYS IN EACH NOSTRIL DAILY

REACTIONS (6)
  - Inappropriate schedule of drug administration [Unknown]
  - Complication associated with device [Recovered/Resolved]
  - Laceration [Recovering/Resolving]
  - Injury associated with device [Recovering/Resolving]
  - Skin abrasion [Recovering/Resolving]
  - Product quality issue [Unknown]

NARRATIVE: CASE EVENT DATE: 20180418
